FAERS Safety Report 21051733 (Version 3)
Quarter: 2022Q3

REPORT INFORMATION
  Report Type: Report from Study
  Country: GR (occurrence: GR)
  Receive Date: 20220707
  Receipt Date: 20220715
  Transmission Date: 20221027
  Serious: Yes (Other)
  Sender: FDA-Public Use
  Company Number: GR-UCBSA-2022037296

PATIENT

DRUGS (1)
  1. CIMZIA [Suspect]
     Active Substance: CERTOLIZUMAB PEGOL
     Indication: Psoriasis
     Dosage: UNK

REACTIONS (4)
  - Hepatitis [Unknown]
  - Inflammatory bowel disease [Unknown]
  - Tuberculosis [Unknown]
  - Depression [Unknown]
